FAERS Safety Report 5394185-0 (Version None)
Quarter: 2007Q3

REPORT INFORMATION
  Report Type: 
  Country: None (occurrence: None)
  Receive Date: 20070723
  Receipt Date: 20070329
  Transmission Date: 20080115
  Serious: No
  Sender: FDA-Public Use
  Company Number: A0645223A

PATIENT
  Sex: Female

DRUGS (8)
  1. AVANDIA [Suspect]
     Dosage: 8MG PER DAY
     Route: 048
     Dates: start: 20010101
  2. AMARYL [Suspect]
     Dosage: 2MG THREE TIMES PER DAY
     Route: 048
     Dates: start: 19990101
  3. BYETTA [Suspect]
     Dosage: 5MCG TWICE PER DAY
     Route: 058
     Dates: start: 20070201
  4. METFORMIN HCL [Suspect]
     Dosage: 850MG THREE TIMES PER DAY
     Route: 048
     Dates: start: 19940101
  5. AVALIDE [Concomitant]
  6. NORVASC [Concomitant]
  7. PROZAC [Concomitant]
  8. LESCOL [Concomitant]

REACTIONS (5)
  - DRUG INEFFECTIVE [None]
  - ILL-DEFINED DISORDER [None]
  - NAUSEA [None]
  - OEDEMA PERIPHERAL [None]
  - WEIGHT INCREASED [None]
